FAERS Safety Report 20461091 (Version 1)
Quarter: 2022Q1

REPORT INFORMATION
  Report Type: Other
  Country: None (occurrence: AL)
  Receive Date: 20220211
  Receipt Date: 20220211
  Transmission Date: 20220424
  Serious: Yes (Hospitalization)
  Sender: FDA-Public Use
  Company Number: AL-B.Braun Medical Inc.-2125794

PATIENT
  Age: 74 Year
  Sex: Female

DRUGS (1)
  1. ACETAMINOPHEN [Suspect]
     Active Substance: ACETAMINOPHEN

REACTIONS (3)
  - Accidental overdose [Recovered/Resolved]
  - Acute kidney injury [Recovered/Resolved]
  - Drug-induced liver injury [Recovered/Resolved]
